FAERS Safety Report 12144594 (Version 1)
Quarter: 2016Q1

REPORT INFORMATION
  Report Type: Spontaneous
  Country: US (occurrence: US)
  Receive Date: 20160304
  Receipt Date: 20160304
  Transmission Date: 20160526
  Serious: No
  Sender: FDA-Public Use
  Company Number: US-ACORDA-ACO_24810_2010

PATIENT
  Age: 61 Year
  Sex: Female
  Weight: 90 kg

DRUGS (4)
  1. LISINOPRIL HCTZ [Concomitant]
     Active Substance: HYDROCHLOROTHIAZIDE\LISINOPRIL
     Dosage: 10 MG/12.5 MG
  2. AMPYRA [Suspect]
     Active Substance: DALFAMPRIDINE
     Indication: GAIT DISTURBANCE
     Dosage: 10 MG, BID
     Route: 048
     Dates: start: 20100801, end: 20100922
  3. SYNTHROID [Concomitant]
     Active Substance: LEVOTHYROXINE SODIUM
     Dosage: DF
  4. BABY ASPIRIN [Concomitant]
     Active Substance: ASPIRIN
     Dosage: DF

REACTIONS (3)
  - Insomnia [Recovered/Resolved]
  - Drug ineffective [Recovered/Resolved]
  - Product quality issue [Not Recovered/Not Resolved]

NARRATIVE: CASE EVENT DATE: 201008
